FAERS Safety Report 6982736-1 (Version None)
Quarter: 2010Q3

REPORT INFORMATION
  Report Type: 
  Country: None (occurrence: None)
  Receive Date: 20100914
  Receipt Date: 20100318
  Transmission Date: 20110219
  Serious: Yes (Other)
  Sender: FDA-Public Use
  Company Number: US-PFIZER INC-2010035742

PATIENT
  Sex: Female
  Weight: 81.646 kg

DRUGS (5)
  1. LYRICA [Suspect]
     Indication: MUSCULOSKELETAL PAIN
     Dosage: UNK
     Dates: end: 20090101
  2. LYRICA [Suspect]
     Indication: BACK PAIN
  3. LYRICA [Suspect]
     Indication: HEADACHE
  4. LYRICA [Suspect]
     Indication: NERVE INJURY
  5. PROZAC [Concomitant]

REACTIONS (7)
  - DYSKINESIA [None]
  - DYSPHAGIA [None]
  - DYSPHEMIA [None]
  - OEDEMA PERIPHERAL [None]
  - PHARYNGEAL OEDEMA [None]
  - SWELLING FACE [None]
  - WEIGHT INCREASED [None]
